FAERS Safety Report 4411140-5 (Version None)
Quarter: 2004Q2

REPORT INFORMATION
  Report Type: 
  Country: None (occurrence: None)
  Receive Date: 20040630
  Receipt Date: 20040331
  Transmission Date: 20050107
  Serious: No
  Sender: FDA-Public Use
  Company Number: 03P-163-0237899-00

PATIENT
  Age: 68 Year
  Sex: Female
  Weight: 58.0604 kg

DRUGS (8)
  1. HUMIRA [Suspect]
     Indication: RHEUMATOID ARTHRITIS
     Dosage: 40 MG, 1 IN 2 WK, SUBCUTANEOUS
     Route: 058
     Dates: start: 20030924
  2. METHOTREXATE SODIUM [Concomitant]
  3. PREDNISONE TAB [Concomitant]
  4. SULTOPRIDE [Concomitant]
  5. VICODIN [Concomitant]
  6. ALPRAZOLAM [Concomitant]
  7. VALACYCLOVIR HCL [Concomitant]
  8. MOXIFLOXACIN HYDROCHLORIDE [Concomitant]

REACTIONS (7)
  - GAIT DISTURBANCE [None]
  - HERPES ZOSTER [None]
  - INFLUENZA [None]
  - MUSCULAR WEAKNESS [None]
  - RED BLOOD CELL SEDIMENTATION RATE DECREASED [None]
  - RED BLOOD CELL SEDIMENTATION RATE INCREASED [None]
  - WHITE BLOOD CELL COUNT INCREASED [None]
